FAERS Safety Report 10855739 (Version 1)
Quarter: 2015Q1

REPORT INFORMATION
  Report Type: Spontaneous
  Country: US (occurrence: None)
  Receive Date: 20150218
  Receipt Date: 20150218
  Transmission Date: 20150721
  Serious: Yes (Other)
  Sender: FDA-Public Use
  Company Number: None

PATIENT
  Age: 41 Year
  Sex: Male
  Weight: 81.65 kg

DRUGS (1)
  1. TAMIFLU [Suspect]
     Active Substance: OSELTAMIVIR PHOSPHATE
     Indication: INFLUENZA
     Route: 048
     Dates: start: 20150213, end: 20150217

REACTIONS (6)
  - Abnormal behaviour [None]
  - Abasia [None]
  - Aphasia [None]
  - Incoherent [None]
  - Unresponsive to stimuli [None]
  - Memory impairment [None]

NARRATIVE: CASE EVENT DATE: 20150215
